FAERS Safety Report 25399699 (Version 1)
Quarter: 2025Q2

REPORT INFORMATION
  Report Type: Spontaneous
  Country: US (occurrence: US)
  Receive Date: 20250605
  Receipt Date: 20250605
  Transmission Date: 20250716
  Serious: No
  Sender: ELI LILLY AND COMPANY
  Company Number: US-ELI_LILLY_AND_COMPANY-US202506000472

PATIENT
  Age: 57 Year
  Sex: Male

DRUGS (4)
  1. ZEPBOUND [Suspect]
     Active Substance: TIRZEPATIDE
     Indication: Weight control
     Dosage: 2.5 MG, WEEKLY (1/W)
     Route: 058
     Dates: start: 202504
  2. ZEPBOUND [Suspect]
     Active Substance: TIRZEPATIDE
     Indication: Disability
  3. ZEPBOUND [Suspect]
     Active Substance: TIRZEPATIDE
     Indication: Hypokinesia
  4. ZEPBOUND [Suspect]
     Active Substance: TIRZEPATIDE
     Indication: Exercise tolerance decreased

REACTIONS (2)
  - Weight increased [Unknown]
  - Asthenia [Unknown]

NARRATIVE: CASE EVENT DATE: 20250501
